FAERS Safety Report 24720442 (Version 2)
Quarter: 2025Q1

REPORT INFORMATION
  Report Type: Spontaneous
  Country: US (occurrence: US)
  Receive Date: 20241211
  Receipt Date: 20250206
  Transmission Date: 20250408
  Serious: No
  Sender: GLAXOSMITHKLINE
  Company Number: US-GSKCCFUS-Case-02163655_AE-119207

PATIENT
  Sex: Male
  Weight: 75.66 kg

DRUGS (2)
  1. NUCALA [Suspect]
     Active Substance: MEPOLIZUMAB
     Indication: Pulmonary fibrosis
     Dosage: 100 MG, Q4W
     Dates: start: 20241218
  2. NUCALA [Suspect]
     Active Substance: MEPOLIZUMAB
     Indication: Asthma

REACTIONS (5)
  - Cough [Unknown]
  - Dyspnoea [Unknown]
  - Rhinorrhoea [Unknown]
  - Product prescribing issue [Unknown]
  - Therapeutic response shortened [Unknown]
